FAERS Safety Report 5809778-3 (Version None)
Quarter: 2008Q3

REPORT INFORMATION
  Report Type: 
  Country: None (occurrence: None)
  Receive Date: 20080708
  Receipt Date: 20071015
  Transmission Date: 20090109
  Serious: Yes (Hospitalization)
  Sender: FDA-Public Use
  Company Number: 2007100046

PATIENT
  Age: 21 Year
  Sex: Female

DRUGS (1)
  1. CARISOPRODOL [Suspect]
     Indication: ILL-DEFINED DISORDER
     Dosage: 20 IN 1 D

REACTIONS (7)
  - ANXIETY [None]
  - HALLUCINATION, VISUAL [None]
  - INSOMNIA [None]
  - MUSCLE TWITCHING [None]
  - PARANOIA [None]
  - TREMOR [None]
  - WITHDRAWAL SYNDROME [None]
